FAERS Safety Report 5495060-3 (Version None)
Quarter: 2007Q4

REPORT INFORMATION
  Report Type: 
  Country: None (occurrence: None)
  Receive Date: 20071024
  Receipt Date: 20071010
  Transmission Date: 20080405
  Serious: Yes (Death, Hospitalization)
  Sender: FDA-Public Use
  Company Number: IT-RANBAXY-2007RR-08418

PATIENT

DRUGS (10)
  1. GABAPENTINE RPG 100MG GELULE [Suspect]
     Dosage: 150 MG, TID
  2. GABAPENTINE RPG 100MG GELULE [Suspect]
     Dosage: 450 MG, UNK
  3. GABAPENTINE RPG 100MG GELULE [Suspect]
     Dosage: 1800 MG, UNK
  4. LANSOPRAZOLE [Concomitant]
     Dosage: 30 MG, UNK
  5. HALOPERIDOL [Concomitant]
     Dosage: 10 MG, UNK
  6. INSULIN [Concomitant]
     Indication: DIABETES MELLITUS
     Dosage: 6 UNK, TID
  7. RAMIPRIL RANBAXY 2,5 MG CAPSULE [Concomitant]
     Indication: HYPERTENSION
     Dosage: 2.5 MG, QD
  8. ASPIRIN TABLETS BP 300MG [Concomitant]
     Dosage: 100 MG, QD
     Route: 048
  9. DILTIAZEM RPG LP 120MG GELULE A LIBERATION PROLONGEE [Concomitant]
     Dosage: 60 MG, QD
  10. FUROSEMIDE RPG 20 MG COMPRIME SECABLE [Concomitant]
     Dosage: 25 MG, QD

REACTIONS (10)
  - ABDOMINAL PAIN UPPER [None]
  - BLOOD CREATINE PHOSPHOKINASE INCREASED [None]
  - DYSPNOEA [None]
  - MYOPATHY [None]
  - OXYGEN SATURATION DECREASED [None]
  - PSYCHOMOTOR HYPERACTIVITY [None]
  - PULMONARY CONGESTION [None]
  - RENAL FAILURE [None]
  - RESPIRATORY FAILURE [None]
  - SOMNOLENCE [None]
